FAERS Safety Report 22602478 (Version 1)
Quarter: 2023Q2

REPORT INFORMATION
  Report Type: Spontaneous
  Country: US (occurrence: US)
  Receive Date: 20230614
  Receipt Date: 20230614
  Transmission Date: 20230722
  Serious: Yes (Other)
  Sender: FDA-Public Use
  Company Number: US-MALLINCKRODT-MNK202302303

PATIENT
  Sex: Male

DRUGS (3)
  1. TERLIPRESSIN [Suspect]
     Active Substance: TERLIPRESSIN
     Indication: Hepatorenal syndrome
     Dosage: UNKNOWN
  2. MIDODRINE [Concomitant]
     Active Substance: MIDODRINE
     Indication: Hepatorenal syndrome
     Dosage: UNKNOWN
  3. OCTREOTIDE [Concomitant]
     Active Substance: OCTREOTIDE
     Indication: Hepatorenal syndrome
     Dosage: UNKNOWN

REACTIONS (2)
  - Haemorrhagic stroke [Unknown]
  - Mental status changes [Unknown]
